FAERS Safety Report 9078723 (Version 1)
Quarter: 2013Q1

REPORT INFORMATION
  Report Type: Spontaneous
  Country: US (occurrence: US)
  Receive Date: 20130130
  Receipt Date: 20130130
  Transmission Date: 20140127
  Serious: No
  Sender: FDA-Public Use
  Company Number: US-B.I. PHARMACEUTICALS,INC./RIDGEFIELD-2013-BI-02479BP

PATIENT
  Sex: Male
  Weight: 79 kg

DRUGS (5)
  1. PRADAXA [Suspect]
     Indication: ATRIAL FIBRILLATION
     Dosage: 300 MG
     Route: 048
     Dates: start: 201205
  2. PROTONIX [Concomitant]
     Indication: GASTROOESOPHAGEAL REFLUX DISEASE
     Dosage: 40 MG
     Route: 048
  3. GLEEVEC [Concomitant]
     Indication: CHRONIC LEUKAEMIA
     Dosage: 400 MG
     Route: 048
  4. BYSTOLIC [Concomitant]
     Route: 048
  5. DIGOXIN [Concomitant]
     Route: 048

REACTIONS (1)
  - Sinus congestion [Not Recovered/Not Resolved]
